FAERS Safety Report 4775982-9 (Version None)
Quarter: 2005Q3

REPORT INFORMATION
  Report Type: 
  Country: None (occurrence: None)
  Receive Date: 20050922
  Receipt Date: 20050920
  Transmission Date: 20060218
  Serious: Yes (Other)
  Sender: FDA-Public Use
  Company Number: JP-SANOFI-SYNTHELABO-F01200501909

PATIENT
  Sex: Female
  Weight: 50 kg

DRUGS (3)
  1. OXALIPLATIN [Suspect]
     Indication: COLON CANCER
     Route: 042
     Dates: start: 20050704, end: 20050704
  2. FLUOROURACIL [Suspect]
     Dosage: 450 MG/BODY=323.7MG/M2 IN BOLUS THEN 600 MG/BODY=431.7 MG/M2 AS CONTINUOUS INFUSION, D1+2
     Route: 042
     Dates: start: 20050704, end: 20050705
  3. CALCIUM LEVOFOLINATE [Suspect]
     Route: 042
     Dates: start: 20050704, end: 20050705

REACTIONS (10)
  - BLOOD ALKALINE PHOSPHATASE INCREASED [None]
  - BLOOD CREATININE INCREASED [None]
  - CARDIAC FAILURE [None]
  - HAEMOGLOBIN DECREASED [None]
  - HEPATIC FAILURE [None]
  - LEUKOPENIA [None]
  - NEUTROPENIA [None]
  - PERICARDITIS [None]
  - SEPSIS [None]
  - THROMBOCYTOPENIA [None]
